FAERS Safety Report 7994681-3 (Version None)
Quarter: 2011Q4

REPORT INFORMATION
  Report Type: 
  Country: None (occurrence: None)
  Receive Date: 20111220
  Receipt Date: 20111215
  Transmission Date: 20120403
  Serious: Yes (Other)
  Sender: FDA-Public Use
  Company Number: VE-PFIZER INC-2011306669

PATIENT
  Age: 55 Year
  Sex: Female

DRUGS (4)
  1. ENALAPRIL [Concomitant]
     Indication: HYPERTENSION
     Dosage: 10 MG, 1X/DAY
     Route: 048
  2. LEVOTHYROXINE SODIUM [Concomitant]
     Indication: THYROID DISORDER
     Dosage: 0.125 MG, 1X/DAY
     Route: 048
  3. GLUCOFAGE [Concomitant]
     Indication: BLOOD GLUCOSE INCREASED
     Dosage: 750 MG, 1X/DAY
     Route: 048
  4. LIPITOR [Suspect]
     Dosage: UNK

REACTIONS (1)
  - PANCREATITIS [None]
